FAERS Safety Report 4694835-8 (Version None)
Quarter: 2005Q2

REPORT INFORMATION
  Report Type: 
  Country: None (occurrence: None)
  Receive Date: 20050620
  Receipt Date: 20050408
  Transmission Date: 20051028
  Serious: Yes (Life-Threatening, Hospitalization)
  Sender: FDA-Public Use
  Company Number: 2005CG00537

PATIENT
  Age: 853 Month
  Sex: Male
  Weight: 48 kg

DRUGS (5)
  1. OMEPRAZOLE [Suspect]
     Indication: GASTROINTESTINAL HAEMORRHAGE
     Route: 048
     Dates: start: 20040801, end: 20041001
  2. OMEPRAZOLE [Suspect]
     Indication: GASTRIC ULCER HELICOBACTER
     Route: 048
     Dates: start: 20040801, end: 20041001
  3. OMEPRAZOLE [Suspect]
     Route: 048
     Dates: start: 20041217, end: 20050405
  4. OMEPRAZOLE [Suspect]
     Route: 048
     Dates: start: 20041217, end: 20050405
  5. PLAVIX [Suspect]
     Route: 048
     Dates: start: 20050311, end: 20050405

REACTIONS (2)
  - DRUG INEFFECTIVE [None]
  - GASTROINTESTINAL HAEMORRHAGE [None]
